FAERS Safety Report 19957489 (Version 5)
Quarter: 2022Q2

REPORT INFORMATION
  Report Type: Report from Study
  Country: US (occurrence: US)
  Receive Date: 20211014
  Receipt Date: 20220526
  Transmission Date: 20220720
  Serious: Yes (Hospitalization)
  Sender: FDA-Public Use
  Company Number: US-BOEHRINGERINGELHEIM-2021-BI-079826

PATIENT
  Age: 71 Year
  Sex: Male

DRUGS (2)
  1. OFEV [Suspect]
     Active Substance: NINTEDANIB
     Indication: Idiopathic pulmonary fibrosis
     Route: 048
     Dates: start: 20191228
  2. OFEV [Suspect]
     Active Substance: NINTEDANIB

REACTIONS (20)
  - Bronchitis [Unknown]
  - Pneumonia [Unknown]
  - Haematochezia [Unknown]
  - Head discomfort [Unknown]
  - Diarrhoea [Unknown]
  - Drug ineffective [Unknown]
  - Feeling abnormal [Unknown]
  - Dyspnoea [Unknown]
  - Pain [Unknown]
  - Hypoaesthesia [Unknown]
  - Blood pressure decreased [Unknown]
  - Flushing [Unknown]
  - Feeling hot [Unknown]
  - Faeces soft [Unknown]
  - Balance disorder [Unknown]
  - Back pain [Unknown]
  - Gait disturbance [Unknown]
  - Paraesthesia [Unknown]
  - Dyspepsia [Unknown]
  - Blood pressure systolic increased [Unknown]

NARRATIVE: CASE EVENT DATE: 20210401
